FAERS Safety Report 10790102 (Version 2)
Quarter: 2015Q1

REPORT INFORMATION
  Report Type: Spontaneous
  Country: CN (occurrence: CN)
  Receive Date: 20150212
  Receipt Date: 20150218
  Transmission Date: 20150721
  Serious: Yes (Hospitalization)
  Sender: FDA-Public Use
  Company Number: CN-ASTRAZENECA-2015SE11582

PATIENT
  Age: 66 Year
  Sex: Female

DRUGS (2)
  1. NEXIUM [Suspect]
     Active Substance: ESOMEPRAZOLE MAGNESIUM
     Indication: REGURGITATION
     Route: 048
  2. NEXIUM [Suspect]
     Active Substance: ESOMEPRAZOLE MAGNESIUM
     Indication: GASTROOESOPHAGEAL REFLUX DISEASE
     Route: 048

REACTIONS (13)
  - Blood albumin decreased [Unknown]
  - Decreased appetite [Unknown]
  - Anaemia [Unknown]
  - Lymphocyte count decreased [Recovered/Resolved]
  - Protein total decreased [Unknown]
  - Somnolence [Unknown]
  - Regurgitation [Unknown]
  - Drug dose omission [Unknown]
  - Feeling abnormal [Unknown]
  - Platelet count decreased [Recovered/Resolved]
  - Globulins decreased [Unknown]
  - Leukopenia [Unknown]
  - Dysgeusia [Unknown]

NARRATIVE: CASE EVENT DATE: 20150124
